FAERS Safety Report 8189317-5 (Version None)
Quarter: 2012Q1

REPORT INFORMATION
  Report Type: 
  Country: None (occurrence: None)
  Receive Date: 20120307
  Receipt Date: 20120229
  Transmission Date: 20120608
  Serious: Yes (Death, Life-Threatening, Hospitalization, Other)
  Sender: FDA-Public Use
  Company Number: DE-CELGENEUS-062-50794-12010688

PATIENT
  Age: 54 Year
  Sex: Female
  Weight: 56 kg

DRUGS (16)
  1. VIDAZA [Suspect]
     Dosage: 75 MILLIGRAM/SQ. METER
     Route: 058
     Dates: start: 20110830, end: 20110905
  2. FLUTICASONE PROPIONATE/SALMETEROL [Concomitant]
     Route: 065
  3. MEROPENEM [Concomitant]
     Indication: INFECTION
     Route: 065
  4. SPIRIVA [Concomitant]
     Route: 065
  5. AMLODIPINE [Concomitant]
     Route: 065
  6. HYDROCHLOROTHIAZIDE [Concomitant]
     Route: 065
  7. VITAMIN B-12 [Concomitant]
     Dosage: 3 MILLIGRAM
     Route: 065
  8. RAMIPRIL [Concomitant]
     Route: 065
  9. VIDAZA [Suspect]
     Indication: REFRACTORY ANAEMIA WITH AN EXCESS OF BLASTS
     Dosage: 75 MILLIGRAM/SQ. METER
     Route: 058
     Dates: start: 20110804, end: 20110810
  10. VIDAZA [Suspect]
     Dosage: 75 MILLIGRAM/SQ. METER
     Route: 058
     Dates: start: 20111125, end: 20111201
  11. ACETYLSALICYLIC ACID SRT [Concomitant]
     Route: 065
  12. METRONIDAZOLE [Concomitant]
     Indication: INFECTION
     Route: 065
  13. ROCEPHIN [Concomitant]
     Dosage: 2 GRAM
     Route: 041
  14. VIDAZA [Suspect]
     Dosage: 75 MILLIGRAM/SQ. METER
     Route: 058
     Dates: end: 20120102
  15. ZOFRAN [Concomitant]
     Route: 065
  16. VIDAZA [Suspect]
     Dosage: 75 MILLIGRAM/SQ. METER
     Route: 058
     Dates: start: 20111028, end: 20111103

REACTIONS (5)
  - GENERAL PHYSICAL HEALTH DETERIORATION [None]
  - CLOSTRIDIUM DIFFICILE COLITIS [None]
  - PNEUMONIA [None]
  - UPPER GASTROINTESTINAL HAEMORRHAGE [None]
  - PYREXIA [None]
